FAERS Safety Report 5591357-7 (Version None)
Quarter: 2008Q1

REPORT INFORMATION
  Report Type: 
  Country: None (occurrence: None)
  Receive Date: 20080115
  Receipt Date: 20080104
  Transmission Date: 20080703
  Serious: Yes (Hospitalization)
  Sender: FDA-Public Use
  Company Number: US-AMGEN-KDL252722

PATIENT
  Sex: Male

DRUGS (6)
  1. ENBREL [Suspect]
     Indication: RHEUMATOID ARTHRITIS
     Route: 058
     Dates: start: 20050428, end: 20070927
  2. METHOTREXATE [Suspect]
     Indication: DRUG USE FOR UNKNOWN INDICATION
     Dates: start: 20030612, end: 20071003
  3. PREDNISONE TAB [Concomitant]
     Dates: start: 20030612
  4. OMEPRAZOLE [Concomitant]
  5. FOLIC ACID [Concomitant]
  6. TRAMADOL HCL [Concomitant]

REACTIONS (4)
  - CHOLELITHIASIS [None]
  - DIVERTICULITIS [None]
  - PERIDIVERTICULAR ABSCESS [None]
  - UMBILICAL HERNIA [None]
